FAERS Safety Report 11111061 (Version 1)
Quarter: 2015Q2

REPORT INFORMATION
  Report Type: Spontaneous
  Country: US (occurrence: US)
  Receive Date: 20150513
  Receipt Date: 20150513
  Transmission Date: 20150821
  Serious: No
  Sender: FDA-Public Use
  Company Number: US-BAYER-2015-201454

PATIENT
  Age: 73 Year
  Sex: Female
  Weight: 63 kg

DRUGS (1)
  1. ALEVE PM [Suspect]
     Active Substance: DIPHENHYDRAMINE HYDROCHLORIDE\NAPROXEN SODIUM
     Indication: ARTHRITIS
     Dosage: 1 DF, QD
     Route: 048
     Dates: start: 201504, end: 201504

REACTIONS (2)
  - Feeling jittery [Recovered/Resolved]
  - Insomnia [Recovered/Resolved]

NARRATIVE: CASE EVENT DATE: 201504
